FAERS Safety Report 5417715-9 (Version None)
Quarter: 2007Q3

REPORT INFORMATION
  Report Type: 
  Country: None (occurrence: None)
  Receive Date: 20070815
  Receipt Date: 20070815
  Transmission Date: 20080115
  Serious: No
  Sender: FDA-Public Use
  Company Number: None

PATIENT
  Sex: Male
  Weight: 70.7611 kg

DRUGS (3)
  1. CYCLOSPORINE [Suspect]
     Indication: HEART TRANSPLANT
     Dosage: 100MG Q12HR ORAL 25MG Q12HR ORAL
     Route: 048
     Dates: start: 19890101
  2. CYCLOSPORINE [Suspect]
     Indication: IMMUNOSUPPRESSION
     Dosage: 100MG Q12HR ORAL 25MG Q12HR ORAL
     Route: 048
     Dates: start: 19890101
  3. CYCLOSPORINE [Suspect]
     Indication: POSTOPERATIVE CARE
     Dosage: 100MG Q12HR ORAL 25MG Q12HR ORAL
     Route: 048
     Dates: start: 19890101

REACTIONS (2)
  - DRUG LEVEL CHANGED [None]
  - THERAPEUTIC RESPONSE UNEXPECTED WITH DRUG SUBSTITUTION [None]
